FAERS Safety Report 9728518 (Version 2)
Quarter: 2013Q4

REPORT INFORMATION
  Report Type: Spontaneous
  Country: BR (occurrence: BR)
  Receive Date: 20131204
  Receipt Date: 20131209
  Transmission Date: 20140711
  Serious: Yes (Other)
  Sender: FDA-Public Use
  Company Number: BR-SA-2013SA122524

PATIENT
  Sex: Male

DRUGS (4)
  1. LANTUS [Suspect]
     Indication: DIABETES MELLITUS
     Route: 065
  2. INSULIN PEN NOS [Suspect]
     Indication: DEVICE THERAPY
     Route: 065
  3. HUMALOG [Concomitant]
     Indication: DIABETES MELLITUS
  4. NPH INSULIN [Concomitant]

REACTIONS (2)
  - Convulsion [Recovered/Resolved]
  - Hypoglycaemia [Recovered/Resolved]
